FAERS Safety Report 19835302 (Version 1)
Quarter: 2021Q3

REPORT INFORMATION
  Report Type: Spontaneous
  Country: US (occurrence: US)
  Receive Date: 20210916
  Receipt Date: 20210916
  Transmission Date: 20211014
  Serious: No
  Sender: FDA-Public Use
  Company Number: US-SA-2021SA302425

PATIENT
  Age: 51 Year
  Sex: Female

DRUGS (1)
  1. DUPIXENT [Suspect]
     Active Substance: DUPILUMAB
     Dosage: 300 MG, FREQUENCY ? OTHER
     Route: 058
     Dates: start: 202106

REACTIONS (3)
  - Eye pruritus [Unknown]
  - Rash [Not Recovered/Not Resolved]
  - Arthralgia [Unknown]
